FAERS Safety Report 19170519 (Version 2)
Quarter: 2021Q2

REPORT INFORMATION
  Report Type: Spontaneous
  Country: US (occurrence: US)
  Receive Date: 20210422
  Receipt Date: 20210621
  Transmission Date: 20210717
  Serious: Yes (Hospitalization, Other)
  Sender: FDA-Public Use
  Company Number: US-TEVA-2021-US-1902733

PATIENT
  Age: 73 Year
  Sex: Male

DRUGS (11)
  1. CALCITRIOL. [Suspect]
     Active Substance: CALCITRIOL
     Indication: PRIMARY HYPOPARATHYROIDISM
     Dosage: .5 MICROGRAM DAILY;
     Route: 065
  2. IPILIMUMAB [Suspect]
     Active Substance: IPILIMUMAB
     Indication: METASTATIC MALIGNANT MELANOMA
     Dosage: EVERY 3 WEEKS
     Route: 042
  3. CALCIUM GLUCONATE. [Concomitant]
     Active Substance: CALCIUM GLUCONATE
     Indication: PRIMARY HYPOPARATHYROIDISM
  4. ERGOCALCIFEROL. [Concomitant]
     Active Substance: ERGOCALCIFEROL
     Indication: HYPOCALCAEMIA
     Dosage: SCHEDULED DAILY FOR 5 DAYS AND WEEKLY, THEREAFTER
     Route: 065
  5. CALCIUM CARBONATE. [Suspect]
     Active Substance: CALCIUM CARBONATE
     Indication: HYPOCALCAEMIA
     Dosage: EQUIVALENT TO 1500MG OF ELEMENTAL CALCIUM THREE TIMES DAILY
     Route: 048
  6. CALCIUM GLUCONATE. [Concomitant]
     Active Substance: CALCIUM GLUCONATE
     Indication: HYPOCALCAEMIA
     Dosage: 5000 MG/500 ML CALCIUM GLUCONATE WITH 5% GLUCOSE [DEXTROSE] AT AN INFUSION RATE OF 50 ML/HOUR
     Route: 065
  7. NIVOLUMAB [Suspect]
     Active Substance: NIVOLUMAB
     Indication: METASTATIC MALIGNANT MELANOMA
     Dosage: EVERY 3 WEEKS
     Route: 042
  8. DEXTROSE. [Concomitant]
     Active Substance: DEXTROSE
     Indication: VEHICLE SOLUTION USE
     Dosage: 5000 MG/500 ML CALCIUM GLUCONATE WITH 5% GLUCOSE [DEXTROSE] AT AN INFUSION RATE OF 50 ML/HOUR
     Route: 065
  9. ERGOCALCIFEROL. [Concomitant]
     Active Substance: ERGOCALCIFEROL
     Indication: PRIMARY HYPOPARATHYROIDISM
  10. CALCITRIOL. [Suspect]
     Active Substance: CALCITRIOL
     Indication: HYPOCALCAEMIA
     Dosage: 1 MICROGRAM DAILY;
     Route: 065
  11. CALCIUM CARBONATE. [Suspect]
     Active Substance: CALCIUM CARBONATE
     Indication: PRIMARY HYPOPARATHYROIDISM
     Dosage: EQUIVALENT TO 1000MG OF ELEMENTAL CALCIUM
     Route: 048

REACTIONS (6)
  - Primary hypoparathyroidism [Recovering/Resolving]
  - Thyroiditis [Unknown]
  - Hypocalcaemia [Recovering/Resolving]
  - Rebound effect [Unknown]
  - Hepatitis [Unknown]
  - Hyperthyroidism [Recovered/Resolved]
